FAERS Safety Report 6882741-X (Version None)
Quarter: 2010Q3

REPORT INFORMATION
  Report Type: 
  Country: None (occurrence: None)
  Receive Date: 20100729
  Receipt Date: 20100720
  Transmission Date: 20110219
  Serious: Yes (Other)
  Sender: FDA-Public Use
  Company Number: US-ROCHE-716428

PATIENT
  Sex: Male

DRUGS (2)
  1. PEGINTERFERON ALFA-2A [Suspect]
     Indication: HEPATITIS C
     Route: 065
     Dates: start: 20100201, end: 20100701
  2. RIBAVIRIN [Suspect]
     Indication: HEPATITIS C
     Route: 065
     Dates: start: 20100201, end: 20100601

REACTIONS (4)
  - AMNESIA [None]
  - DERMATITIS ALLERGIC [None]
  - LOSS OF CONSCIOUSNESS [None]
  - SLEEP DISORDER [None]
